FAERS Safety Report 4957314-6 (Version None)
Quarter: 2006Q1

REPORT INFORMATION
  Report Type: 
  Country: None (occurrence: None)
  Receive Date: 20060323
  Receipt Date: 20060308
  Transmission Date: 20060701
  Serious: Yes (Hospitalization)
  Sender: FDA-Public Use
  Company Number: 2006RL000078

PATIENT
  Age: 20 Year
  Sex: Male
  Weight: 140.6151 kg

DRUGS (5)
  1. RYTHMOL [Suspect]
     Indication: ATRIAL FIBRILLATION
     Dosage: 150 MG; QD PO
     Route: 048
     Dates: start: 20050803, end: 20050804
  2. RYTHMOL [Suspect]
     Indication: ATRIAL FIBRILLATION
     Dosage: 150 MG; QD PO
     Route: 048
     Dates: start: 20050803, end: 20050804
  3. RYTHMOL [Suspect]
     Indication: ATRIAL FIBRILLATION
     Dosage: SEE IMAGE, PO
     Route: 048
     Dates: start: 20050804, end: 20050805
  4. RYTHMOL [Suspect]
     Indication: ATRIAL FIBRILLATION
     Dosage: SEE IMAGE, PO
     Route: 048
     Dates: start: 20050805, end: 20050924
  5. RYTHMOL [Suspect]
     Indication: ATRIAL FIBRILLATION
     Dosage: SEE IMAGE, PO
     Route: 048
     Dates: start: 20051010

REACTIONS (5)
  - ATRIAL FIBRILLATION [None]
  - DRUG INEFFECTIVE [None]
  - HYPERTENSION [None]
  - PALPITATIONS [None]
  - TREATMENT NONCOMPLIANCE [None]
